FAERS Safety Report 4382277-4 (Version None)
Quarter: 2004Q2

REPORT INFORMATION
  Report Type: 
  Country: None (occurrence: None)
  Receive Date: 20040622
  Receipt Date: 20040420
  Transmission Date: 20050107
  Serious: Yes (Hospitalization, Other)
  Sender: FDA-Public Use
  Company Number: PHFR2004GB01844

PATIENT
  Age: 20 Year
  Sex: Female

DRUGS (4)
  1. CLOZARIL [Suspect]
     Indication: SCHIZOPHRENIA
     Dosage: 200MG/DAY
     Route: 048
     Dates: start: 20040319
  2. VALPROATE SODIUM [Suspect]
     Dosage: 1 G, BID
     Route: 048
     Dates: start: 20000101, end: 20040410
  3. LITHIUM CARBONATE [Suspect]
     Dosage: 400 MG, BID
     Route: 048
     Dates: start: 20000101
  4. CLONAZEPAM [Concomitant]
     Indication: AGITATION
     Dosage: 1 MG, QID
     Route: 048
     Dates: start: 20040211, end: 20040406

REACTIONS (16)
  - BACK PAIN [None]
  - BLOOD URINE [None]
  - DRUG INTERACTION [None]
  - DRUG TOXICITY [None]
  - ENCEPHALOPATHY [None]
  - NEUTROPHIL COUNT INCREASED [None]
  - PROTEINURIA [None]
  - PYELONEPHRITIS [None]
  - PYREXIA [None]
  - RENAL FAILURE ACUTE [None]
  - RENAL IMPAIRMENT [None]
  - SEPSIS [None]
  - SOMNOLENCE [None]
  - THERAPEUTIC AGENT TOXICITY [None]
  - URINARY TRACT INFECTION [None]
  - WHITE BLOOD CELL COUNT INCREASED [None]
